FAERS Safety Report 23923927 (Version 1)
Quarter: 2024Q2

REPORT INFORMATION
  Report Type: Spontaneous
  Country: IT (occurrence: IT)
  Receive Date: 20240531
  Receipt Date: 20240531
  Transmission Date: 20240716
  Serious: Yes (Other)
  Sender: FDA-Public Use
  Company Number: None

PATIENT
  Age: 52 Year
  Sex: Female

DRUGS (2)
  1. ETOPOSIDE [Suspect]
     Active Substance: ETOPOSIDE
     Indication: Small cell lung cancer
     Dosage: START OF THERAPY 12/04/2023 - 1ST CYCLE - THERAPY EVERY 21 DAYS, ON DAY 1 - 2 - 3
     Route: 042
     Dates: start: 20230412, end: 20230414
  2. CARBOPLATIN [Suspect]
     Active Substance: CARBOPLATIN
     Indication: Small cell lung cancer
     Dosage: START OF THERAPY 12/04/2023 - 1ST CYCLE - THERAPY EVERY 21 DAYS
     Route: 042
     Dates: start: 20230412, end: 20230412

REACTIONS (3)
  - Thrombocytopenia [Recovering/Resolving]
  - Leukopenia [Recovering/Resolving]
  - Neutropenia [Recovering/Resolving]

NARRATIVE: CASE EVENT DATE: 20230503
